FAERS Safety Report 23930618 (Version 1)
Quarter: 2024Q2

REPORT INFORMATION
  Report Type: Spontaneous
  Country: GB (occurrence: GB)
  Receive Date: 20240603
  Receipt Date: 20240603
  Transmission Date: 20240716
  Serious: Yes (Other)
  Sender: FDA-Public Use
  Company Number: GB-TAKEDA-2024TUS053473

PATIENT
  Age: 2 Year
  Sex: Male

DRUGS (5)
  1. VELCADE [Interacting]
     Active Substance: BORTEZOMIB
     Indication: Autoimmune haemolytic anaemia
     Dosage: UNK
     Route: 042
  2. DARZALEX [Interacting]
     Active Substance: DARATUMUMAB
     Indication: Product used for unknown indication
     Dosage: UNK
     Route: 042
  3. HUMAN IMMUNOGLOBULIN G [Interacting]
     Active Substance: HUMAN IMMUNOGLOBULIN G
     Indication: Autoimmune haemolytic anaemia
     Dosage: UNK
     Route: 042
  4. ABATACEPT [Interacting]
     Active Substance: ABATACEPT
     Dosage: UNK
     Route: 042
  5. RITUXIMAB [Concomitant]
     Active Substance: RITUXIMAB
     Dosage: UNK
     Route: 065

REACTIONS (3)
  - Gastrointestinal haemorrhage [Unknown]
  - Drug interaction [Unknown]
  - Product use in unapproved indication [Unknown]
